FAERS Safety Report 10026167 (Version 1)
Quarter: 2014Q1

REPORT INFORMATION
  Report Type: Spontaneous
  Country: US (occurrence: US)
  Receive Date: 20140320
  Receipt Date: 20140320
  Transmission Date: 20141002
  Serious: No
  Sender: FDA-Public Use
  Company Number: US-ALLERGAN-1400817US

PATIENT
  Age: 60 Year
  Sex: Female

DRUGS (3)
  1. LUMIGAN 0.01% [Suspect]
     Indication: GLAUCOMA
     Dosage: ONE DROP TO EACH EYE EVERY NIGHT
     Route: 047
  2. FLAVOXATE [Concomitant]
     Indication: COLITIS
  3. BALSALAZIDE [Concomitant]
     Indication: BLADDER DISORDER

REACTIONS (9)
  - Cough [Recovering/Resolving]
  - Oropharyngeal pain [Recovering/Resolving]
  - Respiratory disorder [Recovered/Resolved]
  - Dry eye [Not Recovered/Not Resolved]
  - Ocular hyperaemia [Not Recovered/Not Resolved]
  - Foreign body sensation in eyes [Unknown]
  - Vision blurred [Not Recovered/Not Resolved]
  - Eye pain [Recovered/Resolved]
  - Eye pain [Recovered/Resolved]
